FAERS Safety Report 21541534 (Version 1)
Quarter: 2022Q4

REPORT INFORMATION
  Report Type: Spontaneous
  Country: US (occurrence: US)
  Receive Date: 20221102
  Receipt Date: 20221102
  Transmission Date: 20230113
  Serious: No
  Sender: FDA-Public Use
  Company Number: US-002147023-NVSC2022US244552

PATIENT
  Age: 85 Year

DRUGS (1)
  1. INCLISIRAN [Suspect]
     Active Substance: INCLISIRAN
     Indication: Arteriosclerosis
     Dosage: 284 MG (ONE SINGLE DOSE)
     Route: 058

REACTIONS (3)
  - Myalgia [Recovered/Resolved]
  - Pain in extremity [Recovered/Resolved]
  - Drug intolerance [Recovered/Resolved]
